FAERS Safety Report 5329451-8 (Version None)
Quarter: 2007Q2

REPORT INFORMATION
  Report Type: 
  Country: None (occurrence: None)
  Receive Date: 20070221
  Receipt Date: 20060111
  Transmission Date: 20071010
  Serious: Yes (Life-Threatening, Hospitalization)
  Sender: FDA-Public Use
  Company Number: BDI-007857

PATIENT
  Age: 77 Year
  Sex: Male
  Weight: 81 kg

DRUGS (8)
  1. ISOVUE-300 [Suspect]
     Indication: ABDOMINAL PAIN
     Dosage: 150 ML ONCE IV
     Route: 042
     Dates: start: 20060104, end: 20060104
  2. ISOVUE-300 [Suspect]
     Indication: COMPUTERISED TOMOGRAM
     Dosage: 150 ML ONCE IV
     Route: 042
     Dates: start: 20060104, end: 20060104
  3. ISOVUE-300 [Suspect]
     Indication: HERNIA
     Dosage: 150 ML ONCE IV
     Route: 042
     Dates: start: 20060104, end: 20060104
  4. ADVAIR DISKUS 100/50 [Concomitant]
  5. COMBIVENT [Concomitant]
  6. ZANTAC [Concomitant]
  7. COREG [Concomitant]
  8. ZOCOR [Concomitant]

REACTIONS (1)
  - ANAPHYLACTOID REACTION [None]
